FAERS Safety Report 6829295-1 (Version None)
Quarter: 2010Q3

REPORT INFORMATION
  Report Type: 
  Country: None (occurrence: None)
  Receive Date: 20100709
  Receipt Date: 20070228
  Transmission Date: 20110219
  Serious: No
  Sender: FDA-Public Use
  Company Number: US-PFIZER INC-2007005455

PATIENT
  Sex: Male
  Weight: 83.91 kg

DRUGS (5)
  1. CHANTIX [Suspect]
     Indication: SMOKING CESSATION THERAPY
     Dates: start: 20061115
  2. KLONOPIN [Concomitant]
     Indication: ANXIETY
  3. LISINOPRIL [Concomitant]
     Indication: HYPERTENSION
  4. LIPITOR [Concomitant]
     Indication: BLOOD CHOLESTEROL INCREASED
  5. ACETYLSALICYLIC ACID [Concomitant]

REACTIONS (1)
  - DRUG INEFFECTIVE [None]
